FAERS Safety Report 14407271 (Version 2)
Quarter: 2018Q1

REPORT INFORMATION
  Report Type: Spontaneous
  Country: US (occurrence: US)
  Receive Date: 20180118
  Receipt Date: 20180124
  Transmission Date: 20180509
  Serious: Yes (Other)
  Sender: FDA-Public Use
  Company Number: US-PFIZER INC-2018022502

PATIENT
  Sex: Female
  Weight: 59 kg

DRUGS (2)
  1. CYTOMEL [Suspect]
     Active Substance: LIOTHYRONINE SODIUM
     Indication: THYROID DISORDER
     Dosage: 25 UG, 3X/DAY
     Route: 048
  2. GLUTEN [Suspect]
     Active Substance: WHEAT GLUTEN
     Dosage: UNK

REACTIONS (10)
  - Gastrointestinal pain [Unknown]
  - Renal impairment [Unknown]
  - Reaction to excipient [Unknown]
  - Productive cough [Unknown]
  - Rash [Unknown]
  - Abdominal distension [Unknown]
  - Dyspepsia [Unknown]
  - Pyrexia [Unknown]
  - Gluten sensitivity [Unknown]
  - Viral infection [Unknown]
